FAERS Safety Report 6705155-1 (Version None)
Quarter: 2010Q2

REPORT INFORMATION
  Report Type: 
  Country: None (occurrence: None)
  Receive Date: 20100430
  Receipt Date: 20100111
  Transmission Date: 20101027
  Serious: No
  Sender: FDA-Public Use
  Company Number: US-ASTRAZENECA-2010SE01183

PATIENT
  Age: 90 Year
  Sex: Female

DRUGS (4)
  1. NEXIUM [Suspect]
  2. PRILOSEC [Suspect]
  3. PREVACID [Suspect]
  4. ZANTAC [Suspect]

REACTIONS (3)
  - DRUG DOSE OMISSION [None]
  - DRUG INEFFECTIVE [None]
  - PEPTIC ULCER [None]
